FAERS Safety Report 23850772 (Version 1)
Quarter: 2024Q2

REPORT INFORMATION
  Report Type: Spontaneous
  Country: CN (occurrence: CN)
  Receive Date: 20240514
  Receipt Date: 20240514
  Transmission Date: 20240716
  Serious: Yes (Hospitalization, Disabling, Other)
  Sender: FDA-Public Use
  Company Number: CN-ABBVIE-5748955

PATIENT
  Sex: Male
  Weight: 66 kg

DRUGS (5)
  1. VENETOCLAX [Suspect]
     Active Substance: VENETOCLAX
     Indication: Acute myeloid leukaemia
     Dosage: 2 DAYS
     Route: 048
     Dates: start: 20240326, end: 20240409
  2. VENETOCLAX [Suspect]
     Active Substance: VENETOCLAX
     Indication: Acute myeloid leukaemia
     Dosage: 3 DAYS
     Route: 048
     Dates: start: 20240322, end: 20240325
  3. VENETOCLAX [Suspect]
     Active Substance: VENETOCLAX
     Indication: Acute myeloid leukaemia
     Dosage: DOSE REDUCED
     Route: 048
     Dates: start: 20240412, end: 20240417
  4. VENETOCLAX [Suspect]
     Active Substance: VENETOCLAX
     Indication: Acute myeloid leukaemia
     Dosage: 1 DAY
     Route: 048
     Dates: start: 20240319, end: 20240320
  5. AZACITIDINE [Suspect]
     Active Substance: AZACITIDINE
     Indication: Acute myeloid leukaemia
     Dosage: DAY ONE TO SEVEN
     Route: 058
     Dates: start: 20240320, end: 20240326

REACTIONS (11)
  - Myelosuppression [Recovering/Resolving]
  - Agranulocytosis [Unknown]
  - Fungal infection [Unknown]
  - General physical health deterioration [Recovering/Resolving]
  - Pyrexia [Unknown]
  - Temperature intolerance [Unknown]
  - Anaemia [Unknown]
  - Micturition urgency [Unknown]
  - Micturition urgency [Unknown]
  - Abdominal pain [Unknown]
  - Diarrhoea [Unknown]

NARRATIVE: CASE EVENT DATE: 20240101
